FAERS Safety Report 20629507 (Version 1)
Quarter: 2022Q1

REPORT INFORMATION
  Report Type: Spontaneous
  Country: KR (occurrence: KR)
  Receive Date: 20220323
  Receipt Date: 20220323
  Transmission Date: 20220423
  Serious: Yes (Other)
  Sender: FDA-Public Use
  Company Number: KR-TEVA-2022-KR-2018847

PATIENT
  Age: 65 Year
  Sex: Male

DRUGS (1)
  1. DOXORUBICIN [Suspect]
     Active Substance: DOXORUBICIN
     Indication: Hepatocellular carcinoma
     Dosage: UNDERWENT 5 CYCLES OF TRANSCATHETER ARTERIAL CHEMOEMBOLISATION
     Route: 065

REACTIONS (1)
  - Acute myeloid leukaemia [Recovered/Resolved]
